FAERS Safety Report 5264014-4 (Version None)
Quarter: 2007Q1

REPORT INFORMATION
  Report Type: 
  Country: None (occurrence: None)
  Receive Date: 20070313
  Receipt Date: 20070305
  Transmission Date: 20070707
  Serious: Yes (Hospitalization, Other)
  Sender: FDA-Public Use
  Company Number: DZ-PFIZER INC-2007015433

PATIENT
  Age: 55 Year
  Sex: Female

DRUGS (5)
  1. XALATAN [Suspect]
     Indication: INTRAOCULAR PRESSURE INCREASED
     Dates: start: 20070216, end: 20070216
  2. GLYBURIDE [Concomitant]
  3. VENTOLIN [Concomitant]
  4. BRICANYL [Concomitant]
  5. THEOPHYLLINE [Concomitant]

REACTIONS (1)
  - ASTHMA [None]
